FAERS Safety Report 22161677 (Version 1)
Quarter: 2023Q1

REPORT INFORMATION
  Report Type: Spontaneous
  Country: US (occurrence: US)
  Receive Date: 20230331
  Receipt Date: 20230331
  Transmission Date: 20230417
  Serious: No
  Sender: FDA-Public Use
  Company Number: US-IBSA PHARMA INC.-2022-IBS-01861

PATIENT

DRUGS (5)
  1. DICLOFENAC EPOLAMINE [Suspect]
     Active Substance: DICLOFENAC EPOLAMINE
     Indication: Spinal stenosis
     Route: 061
     Dates: start: 20221010
  2. PREVACID [Concomitant]
     Active Substance: LANSOPRAZOLE
     Indication: Gastrooesophageal reflux disease
  3. PREVACID [Concomitant]
     Active Substance: LANSOPRAZOLE
     Indication: Back disorder
  4. PREVACID [Concomitant]
     Active Substance: LANSOPRAZOLE
     Indication: Back pain
  5. TYLENOL [Concomitant]
     Active Substance: ACETAMINOPHEN
     Indication: Arthritis

REACTIONS (9)
  - Feeling abnormal [Unknown]
  - Back pain [Unknown]
  - Nervousness [Unknown]
  - Dizziness [Unknown]
  - Dyspepsia [None]
  - Headache [Unknown]
  - Nausea [None]
  - Wrong technique in product usage process [Unknown]
  - Prescription drug used without a prescription [Unknown]

NARRATIVE: CASE EVENT DATE: 20221010
